FAERS Safety Report 24433771 (Version 1)
Quarter: 2024Q4

REPORT INFORMATION
  Report Type: Report from Study
  Country: CO (occurrence: CO)
  Receive Date: 20241014
  Receipt Date: 20241014
  Transmission Date: 20250115
  Serious: Yes (Death, Hospitalization)
  Sender: ABBVIE
  Company Number: CO-ABBVIE-5960415

PATIENT
  Age: 78 Year
  Sex: Female
  Weight: 52 kg

DRUGS (1)
  1. VENCLEXTA [Suspect]
     Active Substance: VENETOCLAX
     Indication: Acute myeloid leukaemia
     Dosage: FORM STRENGTH 100 MILLIGRAM
     Route: 048
     Dates: start: 20241003, end: 20241003

REACTIONS (3)
  - Fall [Fatal]
  - Haemorrhage [Fatal]
  - Vomiting [Fatal]

NARRATIVE: CASE EVENT DATE: 20241001
